FAERS Safety Report 6272532-5 (Version None)
Quarter: 2009Q3

REPORT INFORMATION
  Report Type: 
  Country: None (occurrence: None)
  Receive Date: 20090717
  Receipt Date: 20090707
  Transmission Date: 20100115
  Serious: Yes (Other)
  Sender: FDA-Public Use
  Company Number: PHHY2009FR27817

PATIENT
  Sex: Male
  Weight: 86.5 kg

DRUGS (9)
  1. STALEVO 100 [Suspect]
     Indication: PARKINSON'S DISEASE
     Dosage: (1000/500/125 MG) DAILY
     Dates: start: 20090303, end: 20090312
  2. STALEVO 100 [Suspect]
     Dosage: (1000/250/62.5 MG) DAILY
     Dates: start: 20090313
  3. MODOPAR [Suspect]
     Indication: PARKINSON'S DISEASE
     Dosage: (500/125 MG) DAILY
     Dates: start: 20010101
  4. MADOPAR CR [Suspect]
     Indication: PARKINSON'S DISEASE
     Dosage: (200/50 MG) DAILY
     Dates: start: 20010101
  5. LYRICA [Suspect]
     Indication: PARKINSON'S DISEASE
     Dosage: 75 MG DAILY
     Dates: start: 20080101, end: 20090305
  6. SIFROL [Concomitant]
     Indication: PARKINSON'S DISEASE
     Dosage: 3 DF DAILY
     Dates: start: 20080101
  7. COUMADIN [Concomitant]
  8. CORDARONE [Concomitant]
     Indication: ATRIAL FLUTTER
  9. SELOKEN [Concomitant]

REACTIONS (3)
  - ARRHYTHMIA [None]
  - HEART RATE IRREGULAR [None]
  - HYPOTENSION [None]
